FAERS Safety Report 10056851 (Version 1)
Quarter: 2014Q2

REPORT INFORMATION
  Report Type: Spontaneous
  Country: US (occurrence: US)
  Receive Date: 20140403
  Receipt Date: 20140403
  Transmission Date: 20141212
  Serious: No
  Sender: FDA-Public Use
  Company Number: US-BAYER-2014-049728

PATIENT
  Sex: Female

DRUGS (2)
  1. ALEVE TABLET [Suspect]
     Indication: ANALGESIC THERAPY
     Dosage: 2 DF, BID
     Route: 048
     Dates: start: 2014
  2. OMEPRAZOLE [Concomitant]

REACTIONS (2)
  - Drug ineffective [None]
  - Incorrect dose administered [None]
